FAERS Safety Report 16082983 (Version 1)
Quarter: 2019Q1

REPORT INFORMATION
  Report Type: Spontaneous
  Country: IN (occurrence: IN)
  Receive Date: 20190318
  Receipt Date: 20190318
  Transmission Date: 20190418
  Serious: No
  Sender: FDA-Public Use
  Company Number: IN-LUPIN LIMITED-2019-01033

PATIENT
  Age: 43 Year
  Sex: Male

DRUGS (1)
  1. VORITROL FILM C.TABS 200 MG [Suspect]
     Active Substance: VORICONAZOLE
     Indication: LUNG INFECTION
     Dosage: 1 TABLET (AFTER 2HRS OF FOOD), BID
     Route: 048
     Dates: start: 20190209

REACTIONS (1)
  - Haemoptysis [Not Recovered/Not Resolved]

NARRATIVE: CASE EVENT DATE: 20190215
